FAERS Safety Report 5835881-8 (Version None)
Quarter: 2008Q3

REPORT INFORMATION
  Report Type: 
  Country: None (occurrence: None)
  Receive Date: 20080806
  Receipt Date: 20080729
  Transmission Date: 20090109
  Serious: Yes (Death)
  Sender: FDA-Public Use
  Company Number: JP-PFIZER INC-2008063925

PATIENT
  Age: 85 Year
  Sex: Female

DRUGS (5)
  1. REVATIO [Suspect]
     Dosage: DAILY DOSE:60MG
     Route: 048
     Dates: start: 20080708, end: 20080721
  2. LASIX [Concomitant]
     Route: 048
  3. ALDACTONE [Concomitant]
     Route: 048
  4. DORNER [Concomitant]
     Route: 048
  5. WARFARIN SODIUM [Concomitant]
     Route: 048

REACTIONS (1)
  - DEATH [None]
